FAERS Safety Report 7179964-1 (Version None)
Quarter: 2010Q4

REPORT INFORMATION
  Report Type: 
  Country: None (occurrence: None)
  Receive Date: 20101221
  Receipt Date: 20101210
  Transmission Date: 20110411
  Serious: Yes (Other)
  Sender: FDA-Public Use
  Company Number: GB-MERCK-1012USA02091

PATIENT
  Sex: Female

DRUGS (2)
  1. DECADRON [Suspect]
     Route: 048
  2. INFLIXIMAB [Suspect]
     Route: 041

REACTIONS (4)
  - CYANOSIS [None]
  - ERYTHEMA [None]
  - INFUSION RELATED REACTION [None]
  - MALAISE [None]
